FAERS Safety Report 4639392-7 (Version None)
Quarter: 2005Q2

REPORT INFORMATION
  Report Type: 
  Country: None (occurrence: None)
  Receive Date: 20050418
  Receipt Date: 20040126
  Transmission Date: 20051028
  Serious: Yes (Life-Threatening, Hospitalization)
  Sender: FDA-Public Use
  Company Number: M03-341-151

PATIENT
  Age: 69 Year
  Sex: Male
  Weight: 117 kg

DRUGS (12)
  1. VELCADE [Suspect]
     Indication: MULTIPLE MYELOMA
     Dosage: IV BOLUS
     Route: 040
     Dates: start: 20030922, end: 20030922
  2. DECADRON [Concomitant]
  3. HEPARIN [Concomitant]
  4. ALLOPURINOL [Concomitant]
  5. VASOTEC [Concomitant]
  6. LASIX [Concomitant]
  7. PREVACID [Concomitant]
  8. WARFARIN SODIUM [Concomitant]
  9. POTASSIUM CHLORIDE [Concomitant]
  10. LORTAB [Concomitant]
  11. INSULIN [Concomitant]
  12. PHENERGAN [Concomitant]

REACTIONS (18)
  - BLOOD CREATININE INCREASED [None]
  - BLOOD PRESSURE IMMEASURABLE [None]
  - BREATH SOUNDS DECREASED [None]
  - BUNDLE BRANCH BLOCK LEFT [None]
  - CEREBROVASCULAR ACCIDENT [None]
  - DEEP VEIN THROMBOSIS [None]
  - DIZZINESS [None]
  - HAEMATOCRIT DECREASED [None]
  - HAEMOGLOBIN DECREASED [None]
  - INCORRECT DOSE ADMINISTERED [None]
  - LOSS OF CONSCIOUSNESS [None]
  - MEDICATION ERROR [None]
  - NAUSEA [None]
  - OEDEMA PERIPHERAL [None]
  - ORTHOSTATIC HYPOTENSION [None]
  - SHOCK [None]
  - SYNCOPE VASOVAGAL [None]
  - VOMITING [None]
